FAERS Safety Report 5918841-8 (Version None)
Quarter: 2008Q4

REPORT INFORMATION
  Report Type: 
  Country: None (occurrence: None)
  Receive Date: 20081015
  Receipt Date: 20081002
  Transmission Date: 20090506
  Serious: Yes (Death, Hospitalization, Other)
  Sender: FDA-Public Use
  Company Number: US-AMGEN-US311270

PATIENT
  Age: 50 Year
  Sex: Female

DRUGS (1)
  1. ENBREL [Suspect]
     Indication: PSORIASIS
     Route: 058

REACTIONS (4)
  - GENERAL PHYSICAL CONDITION ABNORMAL [None]
  - HEPATIC FAILURE [None]
  - PANCREATIC NEOPLASM [None]
  - SHOCK [None]
